FAERS Safety Report 13013004 (Version 5)
Quarter: 2017Q2

REPORT INFORMATION
  Report Type: Spontaneous
  Country: DE (occurrence: DE)
  Receive Date: 20161209
  Receipt Date: 20170522
  Transmission Date: 20170830
  Serious: Yes (Death, Hospitalization, Other)
  Sender: FDA-Public Use
  Company Number: DE-BIOGEN-2016BI00327657

PATIENT
  Age: 66 Year
  Sex: Female

DRUGS (3)
  1. VESIKUR [Concomitant]
     Active Substance: SOLIFENACIN SUCCINATE
     Indication: BLADDER DISORDER
     Route: 065
     Dates: start: 20151020, end: 201607
  2. GILENYA [Concomitant]
     Active Substance: FINGOLIMOD HYDROCHLORIDE
     Indication: MULTIPLE SCLEROSIS
     Route: 065
     Dates: start: 201601, end: 201607
  3. FAMPYRA [Suspect]
     Active Substance: DALFAMPRIDINE
     Indication: GAIT DISTURBANCE
     Route: 048
     Dates: start: 20130702, end: 20160711

REACTIONS (6)
  - Respiratory failure [Fatal]
  - Multiple sclerosis relapse [Fatal]
  - Drug-induced liver injury [Unknown]
  - General physical health deterioration [Fatal]
  - Device related infection [Fatal]
  - Progressive multiple sclerosis [Unknown]

NARRATIVE: CASE EVENT DATE: 201607
